FAERS Safety Report 4982014-6 (Version None)
Quarter: 2006Q2

REPORT INFORMATION
  Report Type: 
  Country: None (occurrence: None)
  Receive Date: 20060424
  Receipt Date: 20060424
  Transmission Date: 20061013
  Serious: Yes (Life-Threatening, Disabling)
  Sender: FDA-Public Use
  Company Number: None

PATIENT
  Age: 47 Year
  Sex: Female
  Weight: 65.7716 kg

DRUGS (1)
  1. AMBIEN [Suspect]
     Indication: INSOMNIA
     Dosage: 10MG   PER NIGHT  PO
     Route: 048
     Dates: start: 19980430, end: 20060405

REACTIONS (7)
  - ABNORMAL SLEEP-RELATED EVENT [None]
  - AMNESIA [None]
  - HAND FRACTURE [None]
  - NERVE INJURY [None]
  - PHYSICAL ABUSE [None]
  - PHYSICAL ASSAULT [None]
  - SLEEP WALKING [None]
